FAERS Safety Report 10163179 (Version 1)
Quarter: 2014Q2

REPORT INFORMATION
  Report Type: Spontaneous
  Country: KR (occurrence: KR)
  Receive Date: 20140509
  Receipt Date: 20140509
  Transmission Date: 20141212
  Serious: Yes (Life-Threatening, Hospitalization)
  Sender: FDA-Public Use
  Company Number: KR-BAYER-2014-068354

PATIENT
  Sex: Male

DRUGS (2)
  1. XOFIGO [Suspect]
     Indication: PROSTATE CANCER METASTATIC
     Dosage: UNK
     Dates: start: 201404
  2. XOFIGO [Suspect]
     Indication: METASTASES TO BONE

REACTIONS (1)
  - General physical health deterioration [Not Recovered/Not Resolved]
